FAERS Safety Report 10136374 (Version 2)
Quarter: 2014Q2

REPORT INFORMATION
  Report Type: Report from Study
  Country: US (occurrence: US)
  Receive Date: 20140429
  Receipt Date: 20140429
  Transmission Date: 20141212
  Serious: Yes (Death, Life-Threatening, Hospitalization)
  Sender: FDA-Public Use
  Company Number: US-JNJFOC-20140414015

PATIENT
  Age: 79 Year
  Sex: Female
  Weight: 68.04 kg

DRUGS (1)
  1. INFLIXIMAB, RECOMBINANT [Suspect]
     Indication: PSORIASIS
     Route: 042
     Dates: start: 200711, end: 201101

REACTIONS (3)
  - Neoplasm malignant [Fatal]
  - Haemorrhagic anaemia [Not Recovered/Not Resolved]
  - Intestinal obstruction [Fatal]
